FAERS Safety Report 12534582 (Version 1)
Quarter: 2016Q3

REPORT INFORMATION
  Report Type: Report from Study
  Country: DE (occurrence: CO)
  Receive Date: 20160706
  Receipt Date: 20160706
  Transmission Date: 20161109
  Serious: Yes (Hospitalization)
  Sender: FDA-Public Use
  Company Number: DE-ACTELION-A-NJ2016-138921

PATIENT
  Age: 55 Year
  Sex: Female

DRUGS (1)
  1. VENTAVIS [Suspect]
     Active Substance: ILOPROST
     Indication: PULMONARY HYPERTENSION
     Dosage: 5 MCG, 6 ID
     Route: 055
     Dates: start: 20150320, end: 20160628

REACTIONS (6)
  - Productive cough [Unknown]
  - Vomiting [Recovered/Resolved]
  - Weight decreased [Recovered/Resolved]
  - Dyspnoea [Unknown]
  - Cardiomegaly [Unknown]
  - Palpitations [Unknown]

NARRATIVE: CASE EVENT DATE: 20160113
